FAERS Safety Report 4841337-1 (Version None)
Quarter: 2005Q4

REPORT INFORMATION
  Report Type: 
  Country: None (occurrence: None)
  Receive Date: 20051130
  Receipt Date: 20051122
  Transmission Date: 20060501
  Serious: Yes (Hospitalization)
  Sender: FDA-Public Use
  Company Number: FR-GLAXOSMITHKLINE-B0401839A

PATIENT
  Age: 50 Year
  Sex: Male

DRUGS (28)
  1. AUGMENTIN '125' [Suspect]
     Dosage: 2G THREE TIMES PER DAY
     Route: 042
     Dates: start: 20051009, end: 20051016
  2. DEXTROSE 5% [Concomitant]
     Route: 065
     Dates: start: 20051009, end: 20051016
  3. SODIUM CHLORURE [Concomitant]
     Route: 065
     Dates: start: 20051009, end: 20051016
  4. VITAMIN K [Concomitant]
     Route: 065
     Dates: start: 20051009, end: 20051016
  5. VITAMINS B1 B6 [Concomitant]
     Route: 065
     Dates: start: 20051009, end: 20051016
  6. GENTAMICIN [Concomitant]
     Route: 065
     Dates: start: 20051012, end: 20051018
  7. MOPRAL [Concomitant]
     Route: 065
     Dates: start: 20051012, end: 20051018
  8. PERFALGAN [Concomitant]
     Route: 065
     Dates: start: 20051012, end: 20051018
  9. FENTANYL [Concomitant]
     Route: 065
     Dates: start: 20051012, end: 20051018
  10. MIDAZOLAM HCL [Concomitant]
     Route: 065
     Dates: start: 20051012, end: 20051018
  11. NORADRENALINE [Concomitant]
     Route: 065
     Dates: start: 20051012, end: 20051018
  12. SUCRALFATE [Concomitant]
     Route: 065
     Dates: start: 20051012, end: 20051018
  13. CERNEVIT-12 [Concomitant]
     Route: 065
     Dates: start: 20051012, end: 20051018
  14. NONAN [Concomitant]
     Route: 065
     Dates: start: 20051012, end: 20051018
  15. MAGNESIUM [Concomitant]
     Route: 065
     Dates: start: 20051012, end: 20051018
  16. PHOCYTAN [Concomitant]
     Route: 065
     Dates: start: 20051012, end: 20051018
  17. ENTERAL FEEDS [Concomitant]
     Dates: start: 20051012, end: 20051018
  18. HEPARIN [Concomitant]
     Route: 065
     Dates: start: 20051020, end: 20051023
  19. MORPHINE [Concomitant]
     Route: 065
     Dates: start: 20051020, end: 20051023
  20. DIPRIVAN [Concomitant]
     Route: 065
     Dates: start: 20051020, end: 20051023
  21. ACUPAN [Concomitant]
     Route: 065
     Dates: start: 20051020, end: 20051023
  22. PYOSTACINE [Concomitant]
     Route: 065
     Dates: start: 20051020, end: 20051023
  23. CONTRAMAL [Concomitant]
     Route: 065
     Dates: start: 20051020, end: 20051023
  24. OFLOCET [Concomitant]
     Route: 065
     Dates: start: 20051020, end: 20051023
  25. LEXOMIL [Concomitant]
     Route: 065
     Dates: start: 20051020, end: 20051023
  26. BACTRIM [Concomitant]
     Route: 065
     Dates: start: 20051020, end: 20051023
  27. AXEPIM [Concomitant]
     Route: 065
  28. CIFLOX [Concomitant]
     Route: 065

REACTIONS (4)
  - BLOOD ALKALINE PHOSPHATASE INCREASED [None]
  - CHOLESTASIS [None]
  - GAMMA-GLUTAMYLTRANSFERASE INCREASED [None]
  - LIPASE INCREASED [None]
